FAERS Safety Report 6893048-9 (Version None)
Quarter: 2010Q3

REPORT INFORMATION
  Report Type: 
  Country: None (occurrence: None)
  Receive Date: 20100731
  Receipt Date: 20090303
  Transmission Date: 20110219
  Serious: No
  Sender: FDA-Public Use
  Company Number: US-PFIZER INC-2008100276

PATIENT
  Sex: Male
  Weight: 68.2 kg

DRUGS (4)
  1. CAVERJECT [Suspect]
     Indication: ERECTILE DYSFUNCTION
     Dosage: 20 UG, UNK
     Dates: start: 20040101
  2. ANTIDEPRESSANTS [Concomitant]
  3. ANXIOLYTICS [Concomitant]
  4. PAXIL [Concomitant]
     Indication: DEPRESSION
     Dosage: UNK

REACTIONS (3)
  - DRUG INEFFECTIVE [None]
  - INJECTION SITE HAEMORRHAGE [None]
  - LIVER FUNCTION TEST ABNORMAL [None]
